FAERS Safety Report 10759668 (Version 1)
Quarter: 2015Q1

REPORT INFORMATION
  Report Type: Report from Study
  Country: US (occurrence: US)
  Receive Date: 20150203
  Receipt Date: 20150203
  Transmission Date: 20150721
  Serious: Yes (Hospitalization)
  Sender: FDA-Public Use
  Company Number: US-ACTELION-A-NJ2015-112075

PATIENT
  Age: 48 Year
  Sex: Female

DRUGS (4)
  1. TYVASO [Concomitant]
     Active Substance: TREPROSTINIL
  2. REVATIO [Concomitant]
     Active Substance: SILDENAFIL CITRATE
  3. VELETRI [Suspect]
     Active Substance: EPOPROSTENOL
     Indication: PULMONARY HYPERTENSION
     Dosage: 21.5 NG/KG, PER MIN
     Route: 042
     Dates: start: 20141015
  4. LETAIRIS [Concomitant]
     Active Substance: AMBRISENTAN

REACTIONS (5)
  - Blood sodium decreased [Unknown]
  - Oedema [Unknown]
  - Blood potassium decreased [Unknown]
  - Fluid retention [Unknown]
  - Swelling [Unknown]

NARRATIVE: CASE EVENT DATE: 20150110
